FAERS Safety Report 21043114 (Version 3)
Quarter: 2022Q3

REPORT INFORMATION
  Report Type: Spontaneous
  Country: JP (occurrence: JP)
  Receive Date: 20220705
  Receipt Date: 20220819
  Transmission Date: 20221026
  Serious: Yes (Life-Threatening, Other)
  Sender: FDA-Public Use
  Company Number: JP-GLAXOSMITHKLINE-JP2022JPN100737

PATIENT

DRUGS (17)
  1. SUMATRIPTAN SUCCINATE [Suspect]
     Active Substance: SUMATRIPTAN SUCCINATE
     Indication: Migraine
     Dosage: 50 MG, PRN
     Route: 048
     Dates: start: 20210714, end: 20210714
  2. FLUTICASONE FUROATE [Suspect]
     Active Substance: FLUTICASONE FUROATE
     Route: 045
  3. SUPLATAST TOSILATE [Concomitant]
     Active Substance: SUPLATAST TOSILATE
     Route: 048
  4. ASTOMIN [Concomitant]
     Route: 048
  5. HERBALS [Concomitant]
     Active Substance: HERBALS
     Route: 048
  6. CARBOCYSTEINE [Concomitant]
     Active Substance: CARBOCYSTEINE
     Route: 048
  7. KEISHIKARYOJUTSUBUTO [Concomitant]
     Route: 048
  8. DIPHENIDOL HYDROCHLORIDE [Concomitant]
     Active Substance: DIPHENIDOL HYDROCHLORIDE
     Route: 048
  9. CEFACLOR [Concomitant]
     Active Substance: CEFACLOR
     Route: 048
  10. TIZANIDINE HYDROCHLORIDE [Concomitant]
     Active Substance: TIZANIDINE HYDROCHLORIDE
     Route: 048
  11. DESLORATADINE [Concomitant]
     Active Substance: DESLORATADINE
     Route: 048
  12. NEXIUM [Concomitant]
     Active Substance: ESOMEPRAZOLE MAGNESIUM
     Route: 048
  13. BILASTINE [Concomitant]
     Active Substance: BILASTINE
     Route: 048
  14. PRIMPERAN [Concomitant]
     Active Substance: METOCLOPRAMIDE HYDROCHLORIDE
     Route: 048
  15. BETAHISTINE MESILATE [Concomitant]
     Active Substance: BETAHISTINE MESILATE
     Route: 048
  16. REBAMIPIDE [Concomitant]
     Active Substance: REBAMIPIDE
     Route: 048
  17. LOXOPROFEN SODIUM [Concomitant]
     Active Substance: LOXOPROFEN SODIUM
     Route: 048

REACTIONS (13)
  - Cardiovascular symptom [Recovered/Resolved]
  - Depressed level of consciousness [Recovered/Resolved]
  - Feeling abnormal [Recovered/Resolved]
  - Hypoaesthesia [Recovered/Resolved]
  - Dyspnoea [Recovered/Resolved]
  - Dizziness [Recovered/Resolved]
  - Chest discomfort [Recovered/Resolved]
  - Head discomfort [Recovered/Resolved]
  - Headache [Recovered/Resolved]
  - Throat tightness [Recovered/Resolved]
  - Pharyngeal swelling [Recovered/Resolved]
  - Dysphagia [Recovered/Resolved]
  - Asthenia [Recovered/Resolved]

NARRATIVE: CASE EVENT DATE: 20210714
